FAERS Safety Report 8369177-X (Version None)
Quarter: 2012Q1

REPORT INFORMATION
  Report Type: 
  Country: None (occurrence: None)
  Receive Date: 20120323
  Receipt Date: 20111206
  Transmission Date: 20120608
  Serious: Yes (Hospitalization, Other)
  Sender: FDA-Public Use
  Company Number: 163-21880-11113019

PATIENT
  Age: 74 Year
  Sex: Female

DRUGS (2)
  1. REVLIMID [Suspect]
     Indication: MYELODYSPLASTIC SYNDROME
     Dosage: 5 MG, 1 CAPSULE ALTERNATING W/2 CAPSULES DAILY, PO
     Route: 048
     Dates: start: 20111024
  2. EXJADE [Concomitant]

REACTIONS (3)
  - RECTAL HAEMORRHAGE [None]
  - RASH GENERALISED [None]
  - ANAEMIA [None]
